FAERS Safety Report 7546179-4 (Version None)
Quarter: 2011Q2

REPORT INFORMATION
  Report Type: 
  Country: None (occurrence: None)
  Receive Date: 20110614
  Receipt Date: 20040130
  Transmission Date: 20111010
  Serious: Yes (Other)
  Sender: FDA-Public Use
  Company Number: PHFR2003GB04687

PATIENT
  Sex: Female

DRUGS (4)
  1. CLOZAPINE [Suspect]
     Dosage: 12.5 MG, BID
     Dates: start: 20031123, end: 20031124
  2. VITAMIN B [Concomitant]
     Dosage: 1 TABLET, BID
     Route: 048
  3. DOXYCLINE ^KALBE FARMA^ [Concomitant]
     Dosage: 1 TABLET, QID
     Route: 048
  4. CLOZAPINE [Suspect]
     Indication: SCHIZOPHRENIA
     Dosage: 12.5 MG, QD
     Route: 048
     Dates: start: 20031122, end: 20031123

REACTIONS (2)
  - HYPOTENSION [None]
  - DEHYDRATION [None]
